FAERS Safety Report 9527484 (Version 3)
Quarter: 2014Q2

REPORT INFORMATION
  Report Type: Spontaneous
  Country: FR (occurrence: FR)
  Receive Date: 20130917
  Receipt Date: 20140516
  Transmission Date: 20141212
  Serious: Yes (Other)
  Sender: FDA-Public Use
  Company Number: FR-BRISTOL-MYERS SQUIBB COMPANY-19344548

PATIENT
  Age: 63 Year
  Sex: Male

DRUGS (9)
  1. ERBITUX SOLN FOR INF [Suspect]
     Indication: COLON CANCER METASTATIC
     Dosage: 1DAY?400MG-STOPED UNK DATE?300MG-STOPED UNK DTAE
     Route: 042
     Dates: start: 20130625
  2. XELODA [Suspect]
     Indication: COLON NEOPLASM
     Dosage: 2 TIMES DAILY DURING 7 DAYS AT EVERY CYCLE
     Route: 048
     Dates: start: 20130625
  3. OXALIPLATIN [Suspect]
     Indication: COLON NEOPLASM
     Dosage: SOLUTION FOR INJECTION
     Route: 042
     Dates: start: 20130625
  4. APREPITANT [Concomitant]
     Indication: ANTIEMETIC SUPPORTIVE CARE
     Dosage: STRENGTH 125
  5. DEXAMETHASONE [Concomitant]
     Indication: ANTIEMETIC SUPPORTIVE CARE
  6. ONDANSETRON [Concomitant]
     Indication: ANTIEMETIC SUPPORTIVE CARE
  7. KARDEGIC [Concomitant]
  8. FLECAINE [Concomitant]
  9. BISOPROLOL [Concomitant]

REACTIONS (4)
  - Neurotoxicity [Recovered/Resolved]
  - Herpes simplex [Recovered/Resolved]
  - Mucosal inflammation [Recovered/Resolved]
  - Skin toxicity [Recovered/Resolved]
